FAERS Safety Report 24084752 (Version 1)
Quarter: 2024Q3

REPORT INFORMATION
  Report Type: Spontaneous
  Country: US (occurrence: None)
  Receive Date: 20240712
  Receipt Date: 20240712
  Transmission Date: 20241017
  Serious: Yes (Hospitalization)
  Sender: Public
  Company Number: None

PATIENT
  Sex: Female

DRUGS (2)
  1. CINACALCET HYDROCHLORIDE [Suspect]
     Active Substance: CINACALCET HYDROCHLORIDE
     Indication: Hyperparathyroidism primary
     Dosage: FREQUENCY : DAILY;?
     Route: 048
     Dates: start: 202007
  2. carit nc (illegible to read) [Concomitant]

REACTIONS (4)
  - Dizziness [None]
  - Pneumonia [None]
  - Therapy interrupted [None]
  - Weight decreased [None]
